FAERS Safety Report 16077105 (Version 1)
Quarter: 2019Q1

REPORT INFORMATION
  Report Type: Spontaneous
  Country: US (occurrence: US)
  Receive Date: 20190315
  Receipt Date: 20190315
  Transmission Date: 20190418
  Serious: No
  Sender: FDA-Public Use
  Company Number: US-BAYER-2019-052201

PATIENT

DRUGS (6)
  1. BAYER ASPIRIN [Suspect]
     Active Substance: ASPIRIN
     Dosage: UNK
  2. CAFFEINE. [Suspect]
     Active Substance: CAFFEINE
     Dosage: UNK
  3. SULFA [SULFACETAMIDE SODIUM] [Suspect]
     Active Substance: SULFACETAMIDE SODIUM
     Dosage: UNK
  4. MECLOMEN [Suspect]
     Active Substance: MECLOFENAMATE SODIUM
     Dosage: UNK
  5. NORGESIC [ACETYLSALICYLIC ACID;CAFFEINE;ORPHENADRINE CITRATE;PHENA [Suspect]
     Active Substance: ASPIRIN\CAFFEINE\ORPHENADRINE\PHENACETIN
     Dosage: UNK
  6. ALEVE [Suspect]
     Active Substance: NAPROXEN SODIUM
     Dosage: UNK

REACTIONS (3)
  - Drug hypersensitivity [Unknown]
  - Dyspnoea [Unknown]
  - Rash [Unknown]
